FAERS Safety Report 9891827 (Version 1)
Quarter: 2014Q1

REPORT INFORMATION
  Report Type: Spontaneous
  Country: GB (occurrence: GB)
  Receive Date: 20140212
  Receipt Date: 20140212
  Transmission Date: 20141002
  Serious: Yes (Hospitalization, Disabling)
  Sender: FDA-Public Use
  Company Number: GB-GLAXOSMITHKLINE-B0967368A

PATIENT
  Age: 79 Year
  Sex: Male
  Weight: 77.8 kg

DRUGS (17)
  1. ORLISTAT [Suspect]
     Indication: OVERWEIGHT
     Route: 048
     Dates: start: 20121207, end: 20130711
  2. METFORMIN [Concomitant]
  3. ATORVASTATIN [Concomitant]
  4. ASPIRIN [Concomitant]
  5. LANSOPRAZOLE [Concomitant]
  6. NAPROXEN [Concomitant]
  7. FINASTERIDE [Concomitant]
  8. TAMSULOSINE [Concomitant]
  9. DOXAZOSIN [Concomitant]
  10. GLUCOSAMINE [Concomitant]
  11. LISINOPRIL [Concomitant]
  12. CETIRIZINE [Concomitant]
  13. FUROSEMIDE [Concomitant]
  14. ADCAL-D3 [Concomitant]
  15. GLIMEPIRIDE [Concomitant]
  16. GAVISCON [Concomitant]
  17. BECLOMETHASONE [Concomitant]

REACTIONS (2)
  - Renal failure chronic [Unknown]
  - Nephropathy [Recovered/Resolved with Sequelae]
